FAERS Safety Report 10154992 (Version 1)
Quarter: 2014Q2

REPORT INFORMATION
  Report Type: Spontaneous
  Country: US (occurrence: None)
  Receive Date: 20140505
  Receipt Date: 20140505
  Transmission Date: 20141212
  Serious: Yes (Life-Threatening, Other)
  Sender: FDA-Public Use
  Company Number: None

PATIENT
  Age: 57 Year
  Sex: Male
  Weight: 112.04 kg

DRUGS (1)
  1. ANDROGEL PUMP [Suspect]
     Indication: BLOOD TESTOSTERONE DECREASED
     Dosage: 1 PUMP EACH SIDE OF BODY QD TOPICAL
     Route: 061

REACTIONS (1)
  - Transient ischaemic attack [None]
